FAERS Safety Report 22622647 (Version 1)
Quarter: 2023Q2

REPORT INFORMATION
  Report Type: Spontaneous
  Country: DE (occurrence: DE)
  Receive Date: 20230621
  Receipt Date: 20230621
  Transmission Date: 20230721
  Serious: Yes (Hospitalization, Other)
  Sender: FDA-Public Use
  Company Number: None

PATIENT
  Age: 32 Year
  Sex: Female
  Weight: 64 kg

DRUGS (1)
  1. ENANTONE MONATS-DEPOT [Suspect]
     Active Substance: LEUPROLIDE ACETATE
     Indication: Adenomyosis
     Dosage: 1 DOSAGE FORM
     Route: 058
     Dates: start: 20230418, end: 20230418

REACTIONS (7)
  - Cholecystitis [Recovering/Resolving]
  - Breast discomfort [Unknown]
  - Gastritis [Recovering/Resolving]
  - Abdominal discomfort [Not Recovered/Not Resolved]
  - Hot flush [Unknown]
  - Dyspnoea [Unknown]
  - Sick leave [Not Recovered/Not Resolved]

NARRATIVE: CASE EVENT DATE: 20230501
